FAERS Safety Report 7230082-3 (Version None)
Quarter: 2011Q1

REPORT INFORMATION
  Report Type: 
  Country: None (occurrence: None)
  Receive Date: 20110118
  Receipt Date: 20110105
  Transmission Date: 20110831
  Serious: No
  Sender: FDA-Public Use
  Company Number: US-BIOGENIDEC-2010BI039105

PATIENT
  Age: 58 Year
  Sex: Male

DRUGS (1)
  1. TYSABRI [Suspect]
     Indication: MULTIPLE SCLEROSIS
     Route: 042
     Dates: start: 20100811

REACTIONS (6)
  - DYSSTASIA [None]
  - DECREASED APPETITE [None]
  - MOBILITY DECREASED [None]
  - MOTOR DYSFUNCTION [None]
  - ASTHENIA [None]
  - FATIGUE [None]
